FAERS Safety Report 24849777 (Version 1)
Quarter: 2025Q1

REPORT INFORMATION
  Report Type: Spontaneous
  Country: MY (occurrence: MY)
  Receive Date: 20250116
  Receipt Date: 20250116
  Transmission Date: 20250409
  Serious: Yes (Other)
  Sender: PFIZER
  Company Number: MY-PFIZER INC-202500008475

PATIENT
  Age: 47 Year
  Sex: Female

DRUGS (1)
  1. METHOTREXATE SODIUM [Suspect]
     Active Substance: METHOTREXATE SODIUM
     Indication: Malignant hydatidiform mole
     Dosage: 100 MG, 1X/DAY
     Route: 042

REACTIONS (2)
  - Stevens-Johnson syndrome [Unknown]
  - Palmar-plantar erythrodysaesthesia syndrome [Unknown]
